FAERS Safety Report 5694801-X (Version None)
Quarter: 2008Q2

REPORT INFORMATION
  Report Type: 
  Country: None (occurrence: None)
  Receive Date: 20080404
  Receipt Date: 20080327
  Transmission Date: 20081010
  Serious: Yes (Congenital Anomaly)
  Sender: FDA-Public Use
  Company Number: GB-MERCK-0706GBR00101B1

PATIENT
  Sex: Female
  Weight: 3 kg

DRUGS (2)
  1. SINGULAIR [Suspect]
     Route: 064
     Dates: start: 20010401, end: 20030301
  2. FEXOFENADINE HYDROCHLORIDE [Concomitant]
     Route: 064

REACTIONS (2)
  - HIP DYSPLASIA [None]
  - VARICOSE ULCERATION [None]
